FAERS Safety Report 9122208 (Version 1)
Quarter: 2013Q1

REPORT INFORMATION
  Report Type: Spontaneous
  Country: US (occurrence: US)
  Receive Date: 20130114
  Receipt Date: 20130114
  Transmission Date: 20140127
  Serious: Yes (Other)
  Sender: FDA-Public Use
  Company Number: US-ASTRAZENECA-2013SE00479

PATIENT
  Age: 44 Year
  Sex: Female
  Weight: 88.5 kg

DRUGS (6)
  1. OMEPRAZOLE [Suspect]
     Indication: GASTROOESOPHAGEAL REFLUX DISEASE
     Route: 048
     Dates: end: 20121219
  2. LISINOPRIL [Suspect]
     Dates: start: 201207
  3. SIMVASTATIN [Concomitant]
     Dates: start: 201207
  4. SPIRIVA [Concomitant]
     Dates: start: 201111
  5. DULERA [Concomitant]
     Dates: start: 201111
  6. PROAIRE [Concomitant]

REACTIONS (15)
  - Fracture [Not Recovered/Not Resolved]
  - Tachyarrhythmia [Not Recovered/Not Resolved]
  - Feeling jittery [Unknown]
  - Muscle spasms [Unknown]
  - Muscle spasms [Unknown]
  - Throat tightness [Unknown]
  - Dyspnoea [Unknown]
  - Hypertension [Unknown]
  - Blood cholesterol increased [Unknown]
  - Chronic obstructive pulmonary disease [Unknown]
  - Muscular weakness [Not Recovered/Not Resolved]
  - Myalgia [Unknown]
  - Headache [Unknown]
  - Nausea [Unknown]
  - Rash [Unknown]
